FAERS Safety Report 15036112 (Version 1)
Quarter: 2018Q2

REPORT INFORMATION
  Report Type: Report from Study
  Country: US (occurrence: US)
  Receive Date: 20180620
  Receipt Date: 20180620
  Transmission Date: 20180711
  Serious: Yes (Other)
  Sender: FDA-Public Use
  Company Number: PHEH2018US023238

PATIENT
  Sex: Female

DRUGS (1)
  1. COSENTYX [Suspect]
     Active Substance: SECUKINUMAB
     Indication: PRODUCT USED FOR UNKNOWN INDICATION
     Route: 065

REACTIONS (6)
  - Skin disorder [Unknown]
  - Skin haemorrhage [Unknown]
  - Skin injury [Unknown]
  - Nasopharyngitis [Unknown]
  - Immunodeficiency [Unknown]
  - Skin exfoliation [Unknown]
